FAERS Safety Report 18044199 (Version 2)
Quarter: 2020Q3

REPORT INFORMATION
  Report Type: Spontaneous
  Country: AT (occurrence: AT)
  Receive Date: 20200720
  Receipt Date: 20200731
  Transmission Date: 20201103
  Serious: Yes (Other)
  Sender: FDA-Public Use
  Company Number: AT-AMGEN-AUTSP2020094191

PATIENT
  Age: 49 Year
  Sex: Female

DRUGS (7)
  1. GALCANEZUMAB [Suspect]
     Active Substance: GALCANEZUMAB
     Indication: PRODUCT USED FOR UNKNOWN INDICATION
     Dosage: UNK
     Route: 065
     Dates: start: 202006
  2. AIMOVIG [Suspect]
     Active Substance: ERENUMAB-AOOE
     Dosage: 70 MG
     Route: 065
     Dates: start: 202001, end: 202005
  3. AIMOVIG [Suspect]
     Active Substance: ERENUMAB-AOOE
     Dosage: 70 MG
     Route: 065
     Dates: start: 201909, end: 201912
  4. AIMOVIG [Suspect]
     Active Substance: ERENUMAB-AOOE
     Indication: MIGRAINE
     Dosage: 70 MG
     Route: 065
     Dates: start: 201809, end: 201906
  5. AIMOVIG [Suspect]
     Active Substance: ERENUMAB-AOOE
     Dosage: 70 MG
     Route: 065
  6. AIMOVIG [Suspect]
     Active Substance: ERENUMAB-AOOE
     Dosage: 140 MG
     Route: 065
  7. AIMOVIG [Suspect]
     Active Substance: ERENUMAB-AOOE
     Dosage: 140 MG
     Route: 065
     Dates: start: 201912, end: 202001

REACTIONS (12)
  - Nausea [Unknown]
  - Vomiting [Unknown]
  - Hypotension [Unknown]
  - Drug ineffective [Unknown]
  - Constipation [Unknown]
  - Pruritus [Unknown]
  - Aura [Unknown]
  - Dizziness [Unknown]
  - Skin burning sensation [Recovered/Resolved]
  - Migraine [Unknown]
  - Migraine with aura [Unknown]
  - Injection site pain [Unknown]

NARRATIVE: CASE EVENT DATE: 2018
